FAERS Safety Report 6152273-5 (Version None)
Quarter: 2009Q2

REPORT INFORMATION
  Report Type: 
  Country: None (occurrence: None)
  Receive Date: 20090410
  Receipt Date: 20090403
  Transmission Date: 20091009
  Serious: Yes (Other)
  Sender: FDA-Public Use
  Company Number: US-GENENTECH-280578

PATIENT
  Sex: Female

DRUGS (2)
  1. AVASTIN [Suspect]
     Indication: NON-SMALL CELL LUNG CANCER
     Dosage: 15 MG/KG, Q3W
     Route: 042
     Dates: start: 20070620, end: 20080601
  2. AVASTIN [Suspect]
     Dosage: 15 MG/KG, Q3W
     Route: 042
     Dates: start: 20081104, end: 20090220

REACTIONS (1)
  - LEUKOENCEPHALOPATHY [None]
